FAERS Safety Report 5081730-8 (Version None)
Quarter: 2006Q3

REPORT INFORMATION
  Report Type: 
  Country: None (occurrence: None)
  Receive Date: 20060816
  Receipt Date: 20060809
  Transmission Date: 20061208
  Serious: Yes (Hospitalization)
  Sender: FDA-Public Use
  Company Number: US-ROCHE-459119

PATIENT
  Age: 50 Year
  Sex: Male

DRUGS (5)
  1. PEGASYS [Suspect]
     Dosage: STRENGTH REPORTED AS 180MCG/0.5ML
     Route: 058
     Dates: start: 20060315, end: 20060715
  2. RIBAVIRIN [Suspect]
     Route: 048
     Dates: start: 20060315, end: 20060715
  3. SOMA [Concomitant]
     Route: 048
  4. XANAX [Concomitant]
     Indication: ANXIETY
     Route: 048
  5. PERCOCET [Concomitant]
     Indication: HIP FRACTURE
     Route: 048
     Dates: start: 20060615

REACTIONS (1)
  - HEART RATE INCREASED [None]
